FAERS Safety Report 6302234-8 (Version None)
Quarter: 2009Q3

REPORT INFORMATION
  Report Type: 
  Country: None (occurrence: None)
  Receive Date: 20090810
  Receipt Date: 20090731
  Transmission Date: 20100115
  Serious: Yes (Hospitalization)
  Sender: FDA-Public Use
  Company Number: US-BIOGENIDEC-2009BI024382

PATIENT
  Age: 25 Year
  Sex: Female

DRUGS (4)
  1. AVONEX [Suspect]
     Indication: MULTIPLE SCLEROSIS
     Route: 030
     Dates: start: 20080801
  2. AVONEX [Suspect]
     Route: 030
  3. TYLENOL W/ CODEINE NO. 3 [Concomitant]
     Indication: SUICIDE ATTEMPT
  4. IBUPROFEN [Concomitant]
     Indication: SUICIDE ATTEMPT

REACTIONS (5)
  - ABNORMAL DREAMS [None]
  - DEPRESSION [None]
  - MULTIPLE SCLEROSIS RELAPSE [None]
  - SUICIDAL IDEATION [None]
  - SUICIDE ATTEMPT [None]
